FAERS Safety Report 5821891-3 (Version None)
Quarter: 2008Q3

REPORT INFORMATION
  Report Type: 
  Country: None (occurrence: None)
  Receive Date: 20080724
  Receipt Date: 20080717
  Transmission Date: 20090109
  Serious: Yes (Other)
  Sender: FDA-Public Use
  Company Number: US-ELI_LILLY_AND_COMPANY-US200807003088

PATIENT
  Sex: Male

DRUGS (7)
  1. HUMULIN N [Suspect]
     Dosage: UNK, UNK
     Dates: start: 20071201
  2. HUMULIN N [Suspect]
     Dosage: UNK, UNK
     Dates: start: 20071201
  3. HUMULIN R [Suspect]
  4. HUMULIN R [Suspect]
  5. ACTOS [Concomitant]
     Dates: end: 20071201
  6. EPHEDRA [Concomitant]
     Dates: end: 20071201
  7. LANTUS [Concomitant]
     Dates: end: 20071201

REACTIONS (4)
  - BLOOD GLUCOSE ABNORMAL [None]
  - MALIGNANT NEOPLASM PROGRESSION [None]
  - PARALYSIS [None]
  - TUMOUR COMPRESSION [None]
